FAERS Safety Report 4280517-3 (Version None)
Quarter: 2004Q1

REPORT INFORMATION
  Report Type: 
  Country: None (occurrence: None)
  Receive Date: 20040128
  Receipt Date: 20040128
  Transmission Date: 20041129
  Serious: Yes (Hospitalization)
  Sender: FDA-Public Use
  Company Number: None

PATIENT
  Sex: Male

DRUGS (19)
  1. COUMADIN [Suspect]
     Indication: DEEP VEIN THROMBOSIS
     Dosage: 2 MG MON/THUR ORAL
     Route: 048
  2. COUMADIN [Suspect]
     Indication: PULMONARY EMBOLISM
     Dosage: 2 MG MON/THUR ORAL
     Route: 048
  3. COUMADIN [Suspect]
     Indication: DEEP VEIN THROMBOSIS
     Dosage: 2.5 MG ALL OTHER ORAL
     Route: 048
  4. COUMADIN [Suspect]
     Indication: PULMONARY EMBOLISM
     Dosage: 2.5 MG ALL OTHER ORAL
     Route: 048
  5. MORPHINE [Concomitant]
  6. OXYCODONE AND ACETAMINOPHEN [Concomitant]
  7. MULTIPLE VITAMIN [Concomitant]
  8. SINC SULFATE [Concomitant]
  9. ASCORBIC ACID [Concomitant]
  10. BACLOFEN [Concomitant]
  11. LACTULOSE [Concomitant]
  12. LORATADINE [Concomitant]
  13. ALBUTEROL [Concomitant]
  14. SENNA [Concomitant]
  15. TRAZODONE HCL [Concomitant]
  16. RABEPRAZOLE SODIUM [Concomitant]
  17. FOLIC ACID [Concomitant]
  18. FINASTERIDE [Concomitant]
  19. CALCIUM CARBONATE WITH VITAMIN D [Concomitant]

REACTIONS (2)
  - INTERNATIONAL NORMALISED RATIO INCREASED [None]
  - LOWER GASTROINTESTINAL HAEMORRHAGE [None]
